FAERS Safety Report 8500135-8 (Version None)
Quarter: 2012Q3

REPORT INFORMATION
  Report Type: 
  Country: None (occurrence: None)
  Receive Date: 20120710
  Receipt Date: 20120706
  Transmission Date: 20120928
  Serious: Yes (Other)
  Sender: FDA-Public Use
  Company Number: US-PFIZER INC-2010US-36170

PATIENT
  Sex: Female
  Weight: 60 kg

DRUGS (5)
  1. LYRICA [Concomitant]
     Dosage: UNK
  2. CALAN [Suspect]
     Indication: HYPERTENSION
     Dosage: 240 MG, 1X/DAY
     Route: 048
     Dates: start: 20060101
  3. NEXIUM [Concomitant]
     Dosage: UNK
  4. TOPROL-XL [Concomitant]
     Dosage: UNK
  5. CARISOPRODOL [Concomitant]
     Dosage: UNK

REACTIONS (2)
  - PNEUMONIA [None]
  - BRONCHITIS [None]
